FAERS Safety Report 18957641 (Version 1)
Quarter: 2021Q1

REPORT INFORMATION
  Report Type: Spontaneous
  Country: US (occurrence: US)
  Receive Date: 20210302
  Receipt Date: 20210302
  Transmission Date: 20210420
  Serious: No
  Sender: FDA-Public Use
  Company Number: US-ALLERGAN-2037635US

PATIENT

DRUGS (1)
  1. NORCO [Suspect]
     Active Substance: ACETAMINOPHEN\HYDROCODONE BITARTRATE
     Indication: EXPOSURE DURING PREGNANCY
     Dosage: 9 DF, QD
     Route: 064
     Dates: start: 2005, end: 2006

REACTIONS (1)
  - Premature baby [Unknown]
